FAERS Safety Report 7872677-X (Version None)
Quarter: 2011Q4

REPORT INFORMATION
  Report Type: 
  Country: None (occurrence: None)
  Receive Date: 20111030
  Receipt Date: 20110502
  Transmission Date: 20120403
  Serious: No
  Sender: FDA-Public Use
  Company Number: US-AMGEN-USASP2011022638

PATIENT
  Age: 44 Year
  Sex: Female
  Weight: 74.376 kg

DRUGS (6)
  1. ARAVA [Concomitant]
     Dosage: 20 MG, UNK
  2. LISINOPRIL [Concomitant]
     Dosage: 2.5 MG, UNK
  3. IBUPROFEN [Concomitant]
     Dosage: 200 MG, UNK
  4. ASPIRIN [Concomitant]
     Dosage: 81 MG, UNK
  5. ENBREL [Suspect]
     Indication: PRODUCT USED FOR UNKNOWN INDICATION
     Dosage: 50 MG, QWK
     Route: 058
  6. DEXLANSOPRAZOLE [Concomitant]
     Dosage: 30 MG, UNK

REACTIONS (4)
  - INJECTION SITE PAIN [None]
  - INJECTION SITE PRURITUS [None]
  - SINUSITIS [None]
  - INJECTION SITE ERYTHEMA [None]
